FAERS Safety Report 5290867-X (Version None)
Quarter: 2007Q2

REPORT INFORMATION
  Report Type: 
  Country: None (occurrence: None)
  Receive Date: 20070409
  Receipt Date: 20070326
  Transmission Date: 20071010
  Serious: Yes (Hospitalization)
  Sender: FDA-Public Use
  Company Number: ES-PFIZER INC-2007023832

PATIENT
  Age: 37 Year
  Sex: Female

DRUGS (5)
  1. SOLU-MODERIN [Suspect]
     Indication: BEHCET'S SYNDROME
     Route: 042
     Dates: start: 20061127, end: 20061129
  2. PREDNISONE [Suspect]
     Indication: BEHCET'S SYNDROME
     Dosage: DAILY DOSE:10MG-FREQ:DAILY: EVERY DAY
     Route: 048
  3. PAROXETINE [Suspect]
     Indication: DEPRESSION
     Dosage: DAILY DOSE:40MG-FREQ:DAILY: EVERY DAY
     Route: 048
  4. PAROXETINE [Concomitant]
     Dates: start: 20060401, end: 20061101
  5. METHOTREXATE [Concomitant]
     Dates: start: 20060601, end: 20061115

REACTIONS (1)
  - MANIA [None]
